FAERS Safety Report 14715190 (Version 2)
Quarter: 2018Q4

REPORT INFORMATION
  Report Type: Spontaneous
  Country: IT (occurrence: IT)
  Receive Date: 20180404
  Receipt Date: 20181128
  Transmission Date: 20190204
  Serious: Yes (Life-Threatening)
  Sender: FDA-Public Use
  Company Number: IT-PFIZER INC-2018135929

PATIENT
  Age: 78 Year
  Sex: Female

DRUGS (4)
  1. CORDARONE [Suspect]
     Active Substance: AMIODARONE HYDROCHLORIDE
     Indication: ATRIAL FIBRILLATION
     Dosage: 200 MG, DAILY
     Route: 048
     Dates: start: 20180301, end: 20180307
  2. LASIX [Suspect]
     Active Substance: FUROSEMIDE
     Dosage: 50 MG, DAILY
     Route: 048
     Dates: start: 20180301, end: 20180307
  3. CLEXANE [Concomitant]
     Active Substance: ENOXAPARIN SODIUM
     Dosage: UNK
  4. PLAUNAC [Concomitant]
     Active Substance: OLMESARTAN MEDOXOMIL
     Dosage: UNK

REACTIONS (4)
  - Presyncope [Unknown]
  - Pulse abnormal [Unknown]
  - Hyperhidrosis [Unknown]
  - Loss of consciousness [Unknown]

NARRATIVE: CASE EVENT DATE: 20180305
